FAERS Safety Report 8313491-0 (Version None)
Quarter: 2012Q2

REPORT INFORMATION
  Report Type: 
  Country: None (occurrence: None)
  Receive Date: 20120426
  Receipt Date: 20120424
  Transmission Date: 20120825
  Serious: Yes (Other)
  Sender: FDA-Public Use
  Company Number: PHHY2010GB71632

PATIENT
  Age: 52 Year
  Sex: Male

DRUGS (1)
  1. TERBINAFINE HCL [Suspect]
     Indication: ONYCHOMYCOSIS
     Dosage: 250 MG, UNK
     Route: 048
     Dates: start: 20100910, end: 20101010

REACTIONS (5)
  - HEPATITIS ACUTE [None]
  - LETHARGY [None]
  - LIVER FUNCTION TEST ABNORMAL [None]
  - PRURITUS GENERALISED [None]
  - CHROMATURIA [None]
